FAERS Safety Report 10035934 (Version 1)
Quarter: 2014Q1

REPORT INFORMATION
  Report Type: Spontaneous
  Country: US (occurrence: US)
  Receive Date: 20140325
  Receipt Date: 20140325
  Transmission Date: 20141002
  Serious: No
  Sender: FDA-Public Use
  Company Number: US-009507513-1403USA001671

PATIENT
  Sex: Female
  Weight: 86.17 kg

DRUGS (2)
  1. MIRALAX [Suspect]
     Indication: CONSTIPATION
     Dosage: 0.5 DF, QD
     Route: 048
     Dates: start: 2005
  2. ATENOLOL [Concomitant]

REACTIONS (4)
  - Constipation [Unknown]
  - Incorrect drug administration duration [Unknown]
  - Underdose [Unknown]
  - Product quality issue [Unknown]
